FAERS Safety Report 5278741-6 (Version None)
Quarter: 2007Q1

REPORT INFORMATION
  Report Type: 
  Country: None (occurrence: None)
  Receive Date: 20061208
  Receipt Date: 20060915
  Transmission Date: 20070707
  Serious: Yes (Hospitalization, Other)
  Sender: FDA-Public Use
  Company Number: USA-2002-0000532

PATIENT
  Age: 48 Year
  Sex: Female
  Weight: 61.2 kg

DRUGS (37)
  1. OXYCONTIN [Suspect]
     Indication: PAIN
     Dosage: ORAL
     Route: 048
     Dates: start: 19960620, end: 20010806
  2. OXYIR CAPSULES 5 MG (OXYCODONE HYDROCHLORIDE) [Suspect]
     Indication: PAIN
     Dosage: 10 MG, PRN, ORAL
     Route: 048
     Dates: start: 19970528
  3. VICODIN ES [Concomitant]
  4. MEDROL [Concomitant]
  5. VALIUM [Concomitant]
  6. ZOLOFT [Concomitant]
  7. FLEXERYL [Concomitant]
  8. DAYPRO [Concomitant]
  9. IBUPROFEN [Concomitant]
  10. TYLENOL [Concomitant]
  11. ZANAFLEX [Concomitant]
  12. IMIPRAMINE [Concomitant]
  13. SERZONE [Concomitant]
  14. LUVOX [Concomitant]
  15. FLONASE [Concomitant]
  16. ALBUTEROL [Concomitant]
  17. VANCERIL [Concomitant]
  18. MECLIZINE [Concomitant]
  19. HYOSOPHEN [Concomitant]
  20. FLOXIN [Concomitant]
  21. MEDROXYPROGESTERONE [Concomitant]
  22. ESTRATAB [Concomitant]
  23. DICYCLOMINE HYDROCHLORIDE [Concomitant]
  24. PRILOSEC [Concomitant]
  25. HYDROCORTISONE-NEOMYCIN-POLYMIXIN B [Concomitant]
  26. ERYTHROMYCIN [Concomitant]
  27. CEPHALEXIN [Concomitant]
  28. PROMETHAZINE [Concomitant]
  29. NAPROXEN [Concomitant]
  30. ROXICODONE [Concomitant]
  31. OXAZEPAM [Concomitant]
  32. GUAIFENESIN [Concomitant]
  33. ZITHROMAX [Concomitant]
  34. HYDROCODONE BITARTRATE + ACETAMINOPHEN [Concomitant]
  35. CLONIDINE [Concomitant]
  36. BUSPAR [Concomitant]
  37. NEURONTIN [Concomitant]

REACTIONS (43)
  - ABDOMINAL DISTENSION [None]
  - ABDOMINAL PAIN [None]
  - ARTHRALGIA [None]
  - ASTHENIA [None]
  - BACK PAIN [None]
  - BLOOD OESTROGEN DECREASED [None]
  - CHEST PAIN [None]
  - CHILLS [None]
  - DEPRESSION [None]
  - DIARRHOEA [None]
  - DISCOMFORT [None]
  - DIZZINESS [None]
  - DRUG DEPENDENCE [None]
  - DRUG EFFECT DECREASED [None]
  - DRUG INEFFECTIVE [None]
  - DRUG TOLERANCE [None]
  - DRUG WITHDRAWAL SYNDROME [None]
  - DRY MOUTH [None]
  - DYSPEPSIA [None]
  - EMOTIONAL DISTRESS [None]
  - FEELING COLD [None]
  - GAIT DISTURBANCE [None]
  - HEADACHE [None]
  - HYPERHIDROSIS [None]
  - IMMUNE SYSTEM DISORDER [None]
  - INSOMNIA [None]
  - LETHARGY [None]
  - MALAISE [None]
  - MIDDLE INSOMNIA [None]
  - MUSCLE SPASMS [None]
  - MUSCULOSKELETAL STIFFNESS [None]
  - MYALGIA [None]
  - NAUSEA [None]
  - NIGHT SWEATS [None]
  - OEDEMA PERIPHERAL [None]
  - PAIN [None]
  - PAIN IN EXTREMITY [None]
  - SEDATION [None]
  - SOMNOLENCE [None]
  - TEARFULNESS [None]
  - URINARY TRACT INFECTION [None]
  - WEIGHT DECREASED [None]
  - WEIGHT INCREASED [None]
